FAERS Safety Report 18234035 (Version 1)
Quarter: 2020Q3

REPORT INFORMATION
  Report Type: Spontaneous
  Country: US (occurrence: US)
  Receive Date: 20200904
  Receipt Date: 20200904
  Transmission Date: 20201103
  Serious: Yes (Other)
  Sender: FDA-Public Use
  Company Number: US-BRISTOL-MYERS SQUIBB COMPANY-BMS-2020-070784

PATIENT
  Age: 67 Year
  Sex: Male
  Weight: 81.63 kg

DRUGS (6)
  1. BYSTOLIC [Concomitant]
     Active Substance: NEBIVOLOL HYDROCHLORIDE
     Indication: HYPERTENSION
     Dosage: UNK
     Route: 065
  2. ELIQUIS [Suspect]
     Active Substance: APIXABAN
     Indication: PULMONARY EMBOLISM
     Dosage: 2.5 MILLIGRAM, BID
     Route: 048
     Dates: start: 20160129
  3. ELIQUIS [Suspect]
     Active Substance: APIXABAN
     Dosage: 5 MILLIGRAM, BID
     Route: 048
  4. QNASL [Suspect]
     Active Substance: BECLOMETHASONE DIPROPIONATE
     Indication: SEASONAL ALLERGY
     Dosage: THREE MONTHS PRIOR TO THE NOSEBLEED
     Route: 065
  5. VASCEPA [Suspect]
     Active Substance: ICOSAPENT ETHYL
     Dosage: 2 GRAM, BID
     Route: 048
     Dates: start: 20160229
  6. VASCEPA [Suspect]
     Active Substance: ICOSAPENT ETHYL
     Indication: BLOOD TRIGLYCERIDES
     Dosage: 2 GRAM, BID
     Route: 048
     Dates: start: 201509, end: 20160129

REACTIONS (3)
  - Intentional product use issue [Unknown]
  - Prescribed underdose [Unknown]
  - Epistaxis [Recovered/Resolved]

NARRATIVE: CASE EVENT DATE: 20160129
